FAERS Safety Report 9382677 (Version 1)
Quarter: 2013Q3

REPORT INFORMATION
  Report Type: Report from Study
  Country: GB (occurrence: GB)
  Receive Date: 20130703
  Receipt Date: 20130703
  Transmission Date: 20140515
  Serious: Yes (Hospitalization)
  Sender: FDA-Public Use
  Company Number: GB-GLAXOSMITHKLINE-B0897869A

PATIENT
  Age: 65 Year
  Sex: Female

DRUGS (3)
  1. SERETIDE [Suspect]
     Indication: CHRONIC OBSTRUCTIVE PULMONARY DISEASE
     Dosage: 1PUFF TWICE PER DAY
     Route: 065
  2. TIOTROPIUM [Concomitant]
     Dosage: 18MCG PER DAY
  3. UNIPHYLLIN CONTINUS [Concomitant]
     Dosage: 200MG PER DAY

REACTIONS (1)
  - Condition aggravated [Unknown]
